FAERS Safety Report 9905513 (Version 1)
Quarter: 2014Q1

REPORT INFORMATION
  Report Type: Spontaneous
  Country: CZ (occurrence: None)
  Receive Date: 20140211
  Receipt Date: 20140211
  Transmission Date: 20141002
  Serious: Yes (Other)
  Sender: FDA-Public Use
  Company Number: 2014000035

PATIENT
  Age: 75 Year
  Sex: Female
  Weight: 60 kg

DRUGS (4)
  1. ACEON (PERINDOPRIL ERBUMINE) TABLET [Suspect]
     Indication: HYPERTENSION
     Dosage: 2.5 MG, QD, ORAL
     Route: 048
     Dates: start: 2013, end: 2013
  2. LETROX (LEVOTHYROXINE SODIUM) [Concomitant]
  3. DETRALEX (DIOSMIN, HESPERIDIN) TABLET, 500 MG [Concomitant]
  4. AGAPURIN (PENTOXIFYLLINE) [Concomitant]

REACTIONS (3)
  - Presyncope [None]
  - Flushing [None]
  - Hypotension [None]
